FAERS Safety Report 9847002 (Version 1)
Quarter: 2014Q1

REPORT INFORMATION
  Report Type: Spontaneous
  Country: US (occurrence: US)
  Receive Date: 20140127
  Receipt Date: 20140127
  Transmission Date: 20141002
  Serious: No
  Sender: FDA-Public Use
  Company Number: US-ROXANE LABORATORIES, INC.-2014-RO-00088RO

PATIENT
  Age: 52 Year
  Sex: Male

DRUGS (1)
  1. FLUTICASONE [Suspect]
     Indication: HYPERSENSITIVITY
     Route: 045
     Dates: start: 201401

REACTIONS (1)
  - Pruritus [Not Recovered/Not Resolved]
